FAERS Safety Report 11641817 (Version 1)
Quarter: 2015Q4

REPORT INFORMATION
  Report Type: Spontaneous
  Country: CA (occurrence: CA)
  Receive Date: 20151019
  Receipt Date: 20151019
  Transmission Date: 20160304
  Serious: Yes (Death, Hospitalization)
  Sender: FDA-Public Use
  Company Number: CA-MYLANLABS-2015M1035201

PATIENT

DRUGS (1)
  1. MAGNESIUM [Suspect]
     Active Substance: MAGNESIUM
     Indication: PRODUCT USED FOR UNKNOWN INDICATION
     Dosage: 28G
     Route: 054

REACTIONS (6)
  - Hypothermia [Recovered/Resolved]
  - Rectal haemorrhage [Unknown]
  - Vaginal haemorrhage [Unknown]
  - Hypermagnesaemia [Fatal]
  - Atrioventricular block first degree [Recovered/Resolved]
  - Ecchymosis [Unknown]
